FAERS Safety Report 4548084-4 (Version None)
Quarter: 2004Q4

REPORT INFORMATION
  Report Type: 
  Country: None (occurrence: None)
  Receive Date: 20041227
  Receipt Date: 20040924
  Transmission Date: 20050328
  Serious: No
  Sender: FDA-Public Use
  Company Number: 04P-163-0274639-00

PATIENT
  Age: 57 Year
  Sex: Female
  Weight: 53.5244 kg

DRUGS (9)
  1. HUMIRA [Suspect]
     Indication: RHEUMATOID ARTHRITIS
     Dosage: 40 MG, 1 IN 2 WK, SUBCUTANEOUS
     Route: 058
     Dates: start: 20040708
  2. HYDROXYCHLOROQUINE PHOSPHATE [Concomitant]
  3. AZATHIOPRINE [Concomitant]
  4. RISEDRONATE SODIUM [Concomitant]
  5. PIROXICAM [Concomitant]
  6. PROVELLA-14 [Concomitant]
  7. CALCIUM GLUCONATE [Concomitant]
  8. MULTIVITAMIN [Concomitant]
  9. FISH OIL [Concomitant]

REACTIONS (1)
  - ANXIETY [None]
